FAERS Safety Report 18420768 (Version 3)
Quarter: 2020Q4

REPORT INFORMATION
  Report Type: Report from Study
  Country: US (occurrence: US)
  Receive Date: 20201023
  Receipt Date: 20201210
  Transmission Date: 20210114
  Serious: Yes (Hospitalization, Other)
  Sender: FDA-Public Use
  Company Number: US-009507513-2010USA008291

PATIENT
  Sex: Female

DRUGS (2)
  1. KEYTRUDA [Suspect]
     Active Substance: PEMBROLIZUMAB
     Dosage: 200 MG, EVERY 21 DAYS
     Route: 042
     Dates: start: 20201006
  2. KEYTRUDA [Suspect]
     Active Substance: PEMBROLIZUMAB
     Indication: TRIPLE NEGATIVE BREAST CANCER
     Dosage: 200 MG, EVERY 21 DAYS
     Route: 042
     Dates: start: 20200507, end: 2020

REACTIONS (1)
  - Thrombosis [Unknown]

NARRATIVE: CASE EVENT DATE: 2020
